FAERS Safety Report 23519094 (Version 2)
Quarter: 2024Q1

REPORT INFORMATION
  Report Type: Other
  Country: US (occurrence: US)
  Receive Date: 20240213
  Receipt Date: 20240312
  Transmission Date: 20240410
  Serious: Yes (Other)
  Sender: FDA-Public Use
  Company Number: US-PRESTIGE-202402-US-000230

PATIENT
  Age: 79 Year
  Sex: Female

DRUGS (1)
  1. ANACIN (ASPIRIN\CAFFEINE) [Suspect]
     Active Substance: ASPIRIN\CAFFEINE
     Indication: Arthralgia
     Dosage: DOSE UNKNOWN
     Route: 048

REACTIONS (1)
  - Toxicity to various agents [Recovered/Resolved]
